FAERS Safety Report 19165404 (Version 1)
Quarter: 2021Q2

REPORT INFORMATION
  Report Type: Spontaneous
  Country: BR (occurrence: BR)
  Receive Date: 20210421
  Receipt Date: 20210421
  Transmission Date: 20210717
  Serious: Yes (Other)
  Sender: FDA-Public Use
  Company Number: BR-TAKEDA-2021TUS024984

PATIENT
  Age: 53 Year
  Sex: Female

DRUGS (3)
  1. ENTYVIO [Suspect]
     Active Substance: VEDOLIZUMAB
     Indication: PRODUCT USED FOR UNKNOWN INDICATION
     Dosage: 300 MILLIGRAM, EVERY 8 WEEKS
     Route: 042
     Dates: start: 20200826
  2. PREDNISONE. [Concomitant]
     Active Substance: PREDNISONE
     Indication: PRODUCT USED FOR UNKNOWN INDICATION
     Dosage: UNK
     Dates: start: 201908, end: 201909
  3. MESACOL MMX [Suspect]
     Active Substance: MESALAMINE
     Indication: PRODUCT USED FOR UNKNOWN INDICATION
     Dosage: 4.8 GRAM, QD
     Route: 048
     Dates: start: 201908, end: 201909

REACTIONS (12)
  - Colitis [Unknown]
  - Weight decreased [Unknown]
  - Drug ineffective [Unknown]
  - Colitis ulcerative [Unknown]
  - Defaecation urgency [Unknown]
  - Gastrointestinal pain [Unknown]
  - Abdominal fat apron [Unknown]
  - Diarrhoea haemorrhagic [Unknown]
  - Rectal tenesmus [Unknown]
  - Weight increased [Unknown]
  - Diarrhoea [Unknown]
  - Condition aggravated [Unknown]

NARRATIVE: CASE EVENT DATE: 201810
